FAERS Safety Report 6272762-2 (Version None)
Quarter: 2009Q3

REPORT INFORMATION
  Report Type: 
  Country: None (occurrence: None)
  Receive Date: 20090717
  Receipt Date: 20090714
  Transmission Date: 20100115
  Serious: No
  Sender: FDA-Public Use
  Company Number: US-B.I. PHARMACEUTICALS,INC./RIDGEFIELD-2009-BP-08402BP

PATIENT
  Sex: Female

DRUGS (9)
  1. SPIRIVA [Suspect]
     Indication: CHRONIC OBSTRUCTIVE PULMONARY DISEASE
     Dosage: 18 MCG
     Route: 055
     Dates: start: 20080101
  2. ADVAIR HFA [Concomitant]
     Indication: ASTHMA
     Route: 055
  3. PREDNISONE [Concomitant]
     Indication: RESPIRATORY TRACT INFECTION
     Route: 048
  4. ALBUTEROL [Concomitant]
     Indication: UNEVALUABLE EVENT
     Dosage: PRN
     Route: 055
  5. PERCOCET [Concomitant]
     Indication: ANALGESIA
     Dosage: PRN
     Route: 048
  6. SOMA [Concomitant]
     Indication: MUSCLE RELAXANT THERAPY
     Dosage: PRN
     Route: 048
  7. VASOTEC [Concomitant]
     Indication: HYPERTENSION
     Dosage: 10 MG
     Route: 048
  8. METOPROLOL TARTRATE [Concomitant]
     Indication: HYPERTENSION
     Dosage: 25 MG
     Route: 048
  9. FLONASE [Concomitant]
     Indication: SEASONAL ALLERGY
     Route: 045

REACTIONS (5)
  - CONSTIPATION [None]
  - HAEMOPTYSIS [None]
  - OCULAR HYPERAEMIA [None]
  - OROPHARYNGEAL PAIN [None]
  - URINARY RETENTION [None]
